FAERS Safety Report 14065393 (Version 7)
Quarter: 2018Q4

REPORT INFORMATION
  Report Type: Spontaneous
  Country: JP (occurrence: JP)
  Receive Date: 20171009
  Receipt Date: 20181027
  Transmission Date: 20190204
  Serious: Yes (Death, Other)
  Sender: FDA-Public Use
  Company Number: JP-009507513-1710JPN000626J

PATIENT
  Age: 62 Year
  Sex: Male
  Weight: 53 kg

DRUGS (7)
  1. KEYTRUDA [Suspect]
     Active Substance: PEMBROLIZUMAB
     Indication: SQUAMOUS CELL CARCINOMA OF LUNG
     Dosage: 200 MG, Q3W
     Route: 041
     Dates: start: 20170418
  2. LANSOPRAZOLE. [Concomitant]
     Active Substance: LANSOPRAZOLE
     Indication: PROPHYLAXIS
     Dosage: 30 MG, QD
     Route: 048
  3. OXYCONTIN [Concomitant]
     Active Substance: OXYCODONE HYDROCHLORIDE
     Indication: PROPHYLAXIS
     Dosage: 10 MG, BID
     Route: 048
     Dates: start: 20170512, end: 20170514
  4. NOVAMIN (PROCHLORPERAZINE) [Concomitant]
     Active Substance: PROCHLORPERAZINE
     Indication: PROPHYLAXIS
     Dosage: 5 MG, TID
     Route: 048
     Dates: start: 20170508, end: 20170514
  5. DECADRON [Concomitant]
     Active Substance: DEXAMETHASONE
     Indication: SQUAMOUS CELL CARCINOMA OF LUNG
     Dosage: 4.0 MG, QD
     Route: 048
     Dates: start: 20170507, end: 20170514
  6. TRAMAL [Concomitant]
     Active Substance: TRAMADOL
     Indication: SQUAMOUS CELL CARCINOMA OF LUNG
     Dosage: 1 DF, QID
     Route: 048
     Dates: start: 20170405, end: 20170514
  7. METOCLOPRAMIDE. [Concomitant]
     Active Substance: METOCLOPRAMIDE
     Indication: PROPHYLAXIS
     Dosage: 10 MG, QD
     Route: 051
     Dates: start: 20170511, end: 20170512

REACTIONS (1)
  - Malignant neoplasm progression [Fatal]

NARRATIVE: CASE EVENT DATE: 20170515
